FAERS Safety Report 15320990 (Version 2)
Quarter: 2018Q4

REPORT INFORMATION
  Report Type: Spontaneous
  Country: US (occurrence: US)
  Receive Date: 20180827
  Receipt Date: 20181026
  Transmission Date: 20190204
  Serious: No
  Sender: FDA-Public Use
  Company Number: US-SA-2018SA235879

PATIENT
  Age: 26 Year
  Sex: Female

DRUGS (1)
  1. AUBAGIO [Suspect]
     Active Substance: TERIFLUNOMIDE
     Indication: MULTIPLE SCLEROSIS
     Dosage: 14 MG, QD
     Route: 048
     Dates: start: 20161019, end: 20181016

REACTIONS (3)
  - Eating disorder [Not Recovered/Not Resolved]
  - Exposure during pregnancy [Unknown]
  - Sinusitis [Unknown]
